FAERS Safety Report 7042131-6 (Version None)
Quarter: 2010Q4

REPORT INFORMATION
  Report Type: 
  Country: None (occurrence: None)
  Receive Date: 20101013
  Receipt Date: 20100204
  Transmission Date: 20110411
  Serious: No
  Sender: FDA-Public Use
  Company Number: US-ASTRAZENECA-2010SE05115

PATIENT
  Age: 73 Year
  Sex: Female
  Weight: 66.2 kg

DRUGS (6)
  1. SYMBICORT [Suspect]
     Indication: CHRONIC OBSTRUCTIVE PULMONARY DISEASE
     Dosage: 160/4.5 TWO PUFFS
     Route: 055
     Dates: start: 20091201
  2. SYMBICORT [Suspect]
     Dosage: ONE PUFF
     Route: 055
  3. VASOTEC [Concomitant]
  4. FOSAMAX [Concomitant]
  5. XANAX [Concomitant]
  6. MIRALAX [Concomitant]

REACTIONS (4)
  - CHEST DISCOMFORT [None]
  - DRUG DOSE OMISSION [None]
  - DYSPNOEA [None]
  - NERVOUSNESS [None]
